FAERS Safety Report 4386856-X (Version None)
Quarter: 2004Q2

REPORT INFORMATION
  Report Type: 
  Country: None (occurrence: None)
  Receive Date: 20040623
  Receipt Date: 20040607
  Transmission Date: 20050107
  Serious: Yes (Hospitalization)
  Sender: FDA-Public Use
  Company Number: USA040669546

PATIENT
  Age: 60 Year
  Sex: Female

DRUGS (10)
  1. FORTEO [Suspect]
     Indication: OSTEOPOROSIS
  2. ALBUTEROL [Concomitant]
  3. SINGULAIR [Concomitant]
  4. LEXAPRO [Concomitant]
  5. LOVENOX [Concomitant]
  6. THEOPHYLLINE [Concomitant]
  7. LASIX [Concomitant]
  8. PREVACID [Concomitant]
  9. CALCIUM [Concomitant]
  10. FLOVENT [Concomitant]

REACTIONS (2)
  - CHRONIC OBSTRUCTIVE AIRWAYS DISEASE EXACERBATED [None]
  - PHARMACEUTICAL PRODUCT COMPLAINT [None]
